FAERS Safety Report 6783731-8 (Version None)
Quarter: 2010Q2

REPORT INFORMATION
  Report Type: 
  Country: None (occurrence: None)
  Receive Date: 20100622
  Receipt Date: 20100611
  Transmission Date: 20101027
  Serious: Yes (Hospitalization)
  Sender: FDA-Public Use
  Company Number: JP-ROCHE-710334

PATIENT
  Sex: Female

DRUGS (3)
  1. CAPECITABINE [Suspect]
     Indication: COLON CANCER METASTATIC
     Route: 048
     Dates: start: 20080912, end: 20080925
  2. CAPECITABINE [Suspect]
     Route: 048
     Dates: start: 20081003, end: 20081014
  3. KRESTIN [Concomitant]
     Dosage: DRUG: KRESTIN (OBTAINED FROM CORIOLUS VERSICOLOR)
     Route: 048
     Dates: start: 20080912

REACTIONS (2)
  - CHOLANGITIS ACUTE [None]
  - PALMAR-PLANTAR ERYTHRODYSAESTHESIA SYNDROME [None]
